FAERS Safety Report 5743425-4 (Version None)
Quarter: 2008Q2

REPORT INFORMATION
  Report Type: 
  Country: None (occurrence: None)
  Receive Date: 20080519
  Receipt Date: 20080519
  Transmission Date: 20081010
  Serious: No
  Sender: FDA-Public Use
  Company Number: None

PATIENT
  Sex: Female

DRUGS (1)
  1. GABAPENTIN [Suspect]
     Indication: RESTLESS LEGS SYNDROME
     Dosage: 300 - 500 MG QHS PO PRIOR TO 08/03/2007
     Route: 048

REACTIONS (4)
  - CONDITION AGGRAVATED [None]
  - DRUG INEFFECTIVE [None]
  - RESTLESS LEGS SYNDROME [None]
  - THERAPEUTIC RESPONSE UNEXPECTED WITH DRUG SUBSTITUTION [None]
